FAERS Safety Report 4569124-2 (Version None)
Quarter: 2005Q1

REPORT INFORMATION
  Report Type: 
  Country: None (occurrence: None)
  Receive Date: 20050201
  Receipt Date: 20050127
  Transmission Date: 20050727
  Serious: Yes (Hospitalization)
  Sender: FDA-Public Use
  Company Number: MK200501-0237-1

PATIENT
  Sex: Male

DRUGS (1)
  1. METHADOSE [Suspect]
     Dosage: 10MG QAM/5MG QPM    APPROXIMATELY 2 WEEKS

REACTIONS (6)
  - DIARRHOEA [None]
  - FATIGUE [None]
  - MEDICATION ERROR [None]
  - PRURITUS [None]
  - RASH [None]
  - VOMITING [None]
